FAERS Safety Report 12480307 (Version 3)
Quarter: 2016Q3

REPORT INFORMATION
  Report Type: Report from Study
  Country: NL (occurrence: NL)
  Receive Date: 20160620
  Receipt Date: 20160823
  Transmission Date: 20161109
  Serious: Yes (Hospitalization)
  Sender: FDA-Public Use
  Company Number: NL-ROCHE-1773888

PATIENT
  Age: 75 Year
  Sex: Female

DRUGS (2)
  1. COBIMETINIB [Suspect]
     Active Substance: COBIMETINIB
     Indication: METASTATIC MALIGNANT MELANOMA
     Dosage: MOST RECENT DOSE ON 13/JUL/2016
     Route: 048
     Dates: start: 20160421, end: 20160713
  2. VEMURAFENIB [Suspect]
     Active Substance: VEMURAFENIB
     Indication: METASTATIC MALIGNANT MELANOMA
     Dosage: MOST RECENT DOSE WAS ON 16/AUG/2016
     Route: 048
     Dates: start: 20160421

REACTIONS (4)
  - Acute kidney injury [Recovered/Resolved]
  - Oedema peripheral [Recovered/Resolved with Sequelae]
  - Pyrexia [Recovered/Resolved]
  - Renal failure [Recovered/Resolved with Sequelae]

NARRATIVE: CASE EVENT DATE: 20160608
